FAERS Safety Report 20893545 (Version 1)
Quarter: 2022Q2

REPORT INFORMATION
  Report Type: Spontaneous
  Country: CN (occurrence: CN)
  Receive Date: 20220531
  Receipt Date: 20220531
  Transmission Date: 20220720
  Serious: Yes (Other)
  Sender: FDA-Public Use
  Company Number: CN-BAYER-2022A074389

PATIENT

DRUGS (1)
  1. EYLEA [Suspect]
     Active Substance: AFLIBERCEPT
     Indication: Product used for unknown indication
     Dosage: STRENGTH: 40 MG/ML, SOLUTION FOR INJECTION
     Route: 031

REACTIONS (2)
  - Conjunctival ulcer [Recovered/Resolved]
  - Ocular discomfort [Recovered/Resolved]
